FAERS Safety Report 25664209 (Version 2)
Quarter: 2025Q3

REPORT INFORMATION
  Report Type: Report from Study
  Country: US (occurrence: US)
  Receive Date: 20250811
  Receipt Date: 20250908
  Transmission Date: 20251020
  Serious: No
  Sender: SUNOVION
  Company Number: US-SUMITOMO PHARMA SWITZERLAND GMBH-2025SPA009944

PATIENT
  Age: 68 Year
  Sex: Male

DRUGS (11)
  1. ORGOVYX [Suspect]
     Active Substance: RELUGOLIX
     Indication: Prostate cancer
     Route: 048
     Dates: start: 20250729, end: 20250729
  2. ORGOVYX [Suspect]
     Active Substance: RELUGOLIX
     Route: 048
  3. CHONDROITIN SULFATE (BOVINE) [Concomitant]
     Active Substance: CHONDROITIN SULFATE (BOVINE)
  4. CIALIS [Concomitant]
     Active Substance: TADALAFIL
  5. CRESTOR [Concomitant]
     Active Substance: ROSUVASTATIN CALCIUM
  6. DOXAZOSIN MESYLATE [Concomitant]
     Active Substance: DOXAZOSIN MESYLATE
  7. FLONASE [Concomitant]
     Active Substance: FLUTICASONE PROPIONATE
  8. LORATADINE [Concomitant]
     Active Substance: LORATADINE
  9. VITAMINS [Concomitant]
     Active Substance: VITAMINS
  10. PROBIOTICS NOS [Concomitant]
     Active Substance: PROBIOTICS NOS
  11. TELMISARTAN AND HYDROCHLOROTHIAZIDE [Concomitant]
     Active Substance: HYDROCHLOROTHIAZIDE\TELMISARTAN

REACTIONS (2)
  - Somnolence [Unknown]
  - Hot flush [Unknown]

NARRATIVE: CASE EVENT DATE: 20250701
